FAERS Safety Report 7244648-8 (Version None)
Quarter: 2011Q1

REPORT INFORMATION
  Report Type: 
  Country: None (occurrence: None)
  Receive Date: 20110125
  Receipt Date: 20110113
  Transmission Date: 20110831
  Serious: Yes (Other)
  Sender: FDA-Public Use
  Company Number: DE-GENENTECH-312543

PATIENT
  Age: 73 Year
  Sex: Female

DRUGS (2)
  1. INDOMETHACIN [Concomitant]
     Indication: PAIN
     Dosage: UNK
  2. MABTHERA [Suspect]
     Indication: RHEUMATOID ARTHRITIS
     Dosage: UNK
     Route: 042
     Dates: start: 20080101

REACTIONS (1)
  - INTESTINAL POLYP [None]
